FAERS Safety Report 5429338-6 (Version None)
Quarter: 2007Q3

REPORT INFORMATION
  Report Type: 
  Country: None (occurrence: None)
  Receive Date: 20070827
  Receipt Date: 20070827
  Transmission Date: 20080115
  Serious: Yes (Hospitalization)
  Sender: FDA-Public Use
  Company Number: None

PATIENT
  Age: 16 Year
  Sex: Female
  Weight: 52.1637 kg

DRUGS (1)
  1. SULFAMETHOXAZOLE AND TRIMETHOPRIM [Suspect]
     Indication: URINARY TRACT INFECTION
     Dosage: 1 TABLET TWICE DAILY PO
     Route: 048
     Dates: start: 20070816, end: 20070822

REACTIONS (7)
  - ANOREXIA [None]
  - ARTHRALGIA [None]
  - HEADACHE [None]
  - PAIN [None]
  - PHOTOPHOBIA [None]
  - PYREXIA [None]
  - RASH GENERALISED [None]
